FAERS Safety Report 5301125-9 (Version None)
Quarter: 2007Q2

REPORT INFORMATION
  Report Type: 
  Country: None (occurrence: None)
  Receive Date: 20070418
  Receipt Date: 20070406
  Transmission Date: 20071010
  Serious: Yes (Other)
  Sender: FDA-Public Use
  Company Number: FRWYE380206APR07

PATIENT
  Age: 33 Year
  Sex: Male

DRUGS (3)
  1. ENBREL [Suspect]
     Indication: PSORIASIS
     Dosage: UNKNOWN
     Route: 058
     Dates: start: 20070101, end: 20070401
  2. RIFINAH [Suspect]
     Dosage: UNKNOWN
     Route: 048
     Dates: end: 20070101
  3. RIFINAH [Suspect]
     Dosage: UNKNOWN
     Route: 048
     Dates: start: 20070301, end: 20070401

REACTIONS (1)
  - DRUG ERUPTION [None]
